FAERS Safety Report 9592745 (Version 1)
Quarter: 2013Q3

REPORT INFORMATION
  Report Type: Spontaneous
  Country: US (occurrence: None)
  Receive Date: 20130930
  Receipt Date: 20130930
  Transmission Date: 20140515
  Serious: Yes (Other)
  Sender: FDA-Public Use
  Company Number: 1000045884

PATIENT
  Age: 59 Year
  Sex: Female

DRUGS (1)
  1. LINZESS [Suspect]
     Indication: COLITIS ULCERATIVE
     Dosage: 145MCG (145MCG, 1 IN 1)
     Dates: start: 20130507

REACTIONS (2)
  - Abdominal pain [None]
  - Off label use [None]
